FAERS Safety Report 12336964 (Version 1)
Quarter: 2016Q2

REPORT INFORMATION
  Report Type: Spontaneous
  Country: DE (occurrence: DE)
  Receive Date: 20160505
  Receipt Date: 20160505
  Transmission Date: 20160815
  Serious: Yes (Other)
  Sender: FDA-Public Use
  Company Number: DE-SUN PHARMACEUTICAL INDUSTRIES LTD-2016RR-115950

PATIENT
  Age: 1 Day
  Sex: Female
  Weight: 1.82 kg

DRUGS (8)
  1. ASS 100 [Concomitant]
     Active Substance: ASPIRIN
     Indication: FACTOR V LEIDEN MUTATION
     Dosage: 100 MG, QD, 5.1.-35. GESTATIONAL WEEK
     Route: 064
     Dates: start: 20150318, end: 20151013
  2. CABERGOLIN [Concomitant]
     Indication: PROLACTINOMA
     Dosage: 0.5 MG, 3/WEEK, 0.-6.2. GESTATIONAL WEEK
     Route: 064
  3. L-THYROXIN 150 [Concomitant]
     Indication: HYPOTHYROIDISM
     Dosage: 175 ?G, DAILY, 0.-35. GESTATIONAL WEEK
     Route: 064
     Dates: start: 20150210, end: 20151013
  4. METFORMIN [Concomitant]
     Active Substance: METFORMIN HYDROCHLORIDE
     Indication: POLYCYSTIC OVARIES
     Dosage: 1000 MG, DAILY, DOSAGE DECREASED TO 500MG/DAY,  0.-12. GESTATIONAL WEEK
     Route: 064
  5. FRAGMIN [Concomitant]
     Active Substance: DALTEPARIN SODIUM
     Indication: FACTOR V LEIDEN MUTATION
     Dosage: 7500 IU, 4.4.-35. GESTATIONAL WEEK
     Route: 064
     Dates: start: 20150314, end: 20151013
  6. FEMIBION SCHWANGERSCHAFT 1 [Concomitant]
     Indication: PROPHYLAXIS OF NEURAL TUBE DEFECT
     Dosage: 0.8 MG, DAILY, 0.-35. GESTATIONAL WEEK
     Route: 064
     Dates: start: 20150210, end: 20151013
  7. ERYTHROMYCIN. [Concomitant]
     Active Substance: ERYTHROMYCIN
     Indication: CHLAMYDIAL INFECTION
     Dosage: 9.-11. GESTATIONAL WEEK
     Route: 064
  8. SERTRALINE [Suspect]
     Active Substance: SERTRALINE HYDROCHLORIDE
     Indication: DEPRESSION
     Dosage: 50 MG, QD, 0.-35. GESTATIONAL WEEK
     Route: 064
     Dates: start: 20150210, end: 20151013

REACTIONS (5)
  - Small for dates baby [Not Recovered/Not Resolved]
  - Infantile haemangioma [Not Recovered/Not Resolved]
  - Restlessness [Recovered/Resolved]
  - Temperature regulation disorder [Recovered/Resolved]
  - Selective eating disorder [Recovered/Resolved]

NARRATIVE: CASE EVENT DATE: 20151013
